FAERS Safety Report 4306834-6 (Version None)
Quarter: 2004Q1

REPORT INFORMATION
  Report Type: 
  Country: None (occurrence: None)
  Receive Date: 20040225
  Receipt Date: 20040126
  Transmission Date: 20041129
  Serious: Yes (Hospitalization)
  Sender: FDA-Public Use
  Company Number: EWC031137027

PATIENT
  Sex: Female

DRUGS (1)
  1. HUMULIN 70/30 [Suspect]
     Indication: DIABETES MELLITUS
     Dosage: 36 IU/DAY
     Dates: start: 20011001

REACTIONS (3)
  - BLOOD GLUCOSE FLUCTUATION [None]
  - BRONCHITIS [None]
  - PHARMACEUTICAL PRODUCT COMPLAINT [None]
